FAERS Safety Report 7289415-4 (Version None)
Quarter: 2011Q1

REPORT INFORMATION
  Report Type: 
  Country: None (occurrence: None)
  Receive Date: 20110211
  Receipt Date: 20110131
  Transmission Date: 20110831
  Serious: Yes (Hospitalization, Other)
  Sender: FDA-Public Use
  Company Number: US-ELI_LILLY_AND_COMPANY-US201101004766

PATIENT
  Sex: Female

DRUGS (19)
  1. METOPROLOL [Concomitant]
  2. PRINIVIL [Concomitant]
     Dosage: 10 MG, UNK
  3. MUCINEX [Concomitant]
  4. CARDIZEM [Concomitant]
     Dosage: 30 MG, AS NEEDED
  5. ENTERIC ASPIRIN [Concomitant]
     Dosage: 81 MG, UNK
  6. DAYPRO [Concomitant]
     Dosage: 1200 MG, EACH MORNING
  7. AMITRIPTYLINE HCL [Concomitant]
     Indication: SLEEP DISORDER
     Dosage: 25 MG, EACH EVENING
  8. CARDIZEM [Concomitant]
     Dosage: 120 MG, UNK
  9. POTASSIUM [Concomitant]
     Dosage: 10 MG, DAILY (1/D)
  10. ZETIA [Concomitant]
     Dosage: 40 MG, UNK
  11. SYNTHROID [Concomitant]
     Dosage: 0.2 MG, UNK
  12. FORTEO [Suspect]
     Indication: OSTEOPOROSIS
     Dosage: 20 UG, DAILY (1/D)
     Route: 065
  13. LASIX [Concomitant]
     Dosage: 20 MG, UNK
  14. ALLEGRA [Concomitant]
  15. CRESTOR [Concomitant]
     Dosage: 40 MG, UNK
  16. ALAVERT [Concomitant]
     Indication: INNER EAR DISORDER
     Dosage: 25 MG, UNK
  17. FORTEO [Suspect]
     Dosage: 20 UG, DAILY (1/D)
  18. ENTERIC ASPIRIN [Concomitant]
     Dosage: 325 MG, UNK
  19. MONOPRIL [Concomitant]

REACTIONS (28)
  - PRESYNCOPE [None]
  - FUNGAL SKIN INFECTION [None]
  - ORTHOSTATIC HYPOTENSION [None]
  - OXYGEN SUPPLEMENTATION [None]
  - TINNITUS [None]
  - ANTICOAGULATION DRUG LEVEL BELOW THERAPEUTIC [None]
  - STAPHYLOCOCCAL SKIN INFECTION [None]
  - FLUID OVERLOAD [None]
  - OEDEMA PERIPHERAL [None]
  - DYSPNOEA [None]
  - DECREASED APPETITE [None]
  - SUTURE RELATED COMPLICATION [None]
  - BLEEDING TIME PROLONGED [None]
  - CHEST PAIN [None]
  - HYPONATRAEMIA [None]
  - ELECTROLYTE DEPLETION [None]
  - ANTICOAGULATION DRUG LEVEL ABOVE THERAPEUTIC [None]
  - MEMORY IMPAIRMENT [None]
  - OVARIAN CYST [None]
  - SKIN DISCOLOURATION [None]
  - FEELING ABNORMAL [None]
  - INFUSION SITE PAIN [None]
  - OXYGEN SATURATION DECREASED [None]
  - PULMONARY THROMBOSIS [None]
  - INFUSION SITE EXTRAVASATION [None]
  - URINE OUTPUT DECREASED [None]
  - MALAISE [None]
  - DRUG DOSE OMISSION [None]
